FAERS Safety Report 17920190 (Version 1)
Quarter: 2020Q2

REPORT INFORMATION
  Report Type: Spontaneous
  Country: CA (occurrence: CA)
  Receive Date: 20200620
  Receipt Date: 20200620
  Transmission Date: 20200714
  Serious: Yes (Hospitalization, Other)
  Sender: FDA-Public Use
  Company Number: CA-ACCORD-185885

PATIENT
  Age: 72 Year
  Sex: Female

DRUGS (21)
  1. AMLODIPINE [Suspect]
     Active Substance: AMLODIPINE BESYLATE
     Indication: PRODUCT USED FOR UNKNOWN INDICATION
  2. SALBUTAMOL/SALBUTAMOL SULFATE [Suspect]
     Active Substance: ALBUTEROL
     Indication: PRODUCT USED FOR UNKNOWN INDICATION
     Dosage: NOT SPECIFIED
  3. FOSAMAX [Concomitant]
     Active Substance: ALENDRONATE SODIUM
  4. SINUS RINSE [Concomitant]
     Active Substance: SODIUM BICARBONATE\SODIUM CHLORIDE
     Route: 045
  5. CALCIUM/COLECALCIFEROL [Suspect]
     Active Substance: CALCIUM\CHOLECALCIFEROL
     Indication: PRODUCT USED FOR UNKNOWN INDICATION
  6. ALVESCO [Concomitant]
     Active Substance: CICLESONIDE
     Dosage: METERED DOSE
     Route: 065
  7. CICLESONIDE [Concomitant]
     Active Substance: CICLESONIDE
     Dosage: NOT SPECIFIED
     Route: 065
  8. FORMOTEROL [Concomitant]
     Active Substance: FORMOTEROL
     Route: 065
  9. AMLODIPINE [Concomitant]
     Active Substance: AMLODIPINE BESYLATE
  10. LIPITOR [Concomitant]
     Active Substance: ATORVASTATIN CALCIUM
     Dosage: NOT SPECIFIED
     Route: 065
  11. UNIPHYL [Concomitant]
     Active Substance: THEOPHYLLINE ANHYDROUS
     Route: 065
  12. MEPOLIZUMAB [Suspect]
     Active Substance: MEPOLIZUMAB
     Indication: PRODUCT USED FOR UNKNOWN INDICATION
     Route: 065
  13. ACLIDINIUM BROMIDE. [Concomitant]
     Active Substance: ACLIDINIUM BROMIDE
     Route: 065
  14. HYDROCHLOROTHIAZIDE. [Concomitant]
     Active Substance: HYDROCHLOROTHIAZIDE
  15. SINGULAIR [Concomitant]
     Active Substance: MONTELUKAST SODIUM
     Dosage: NOT SPECIFIED
     Route: 065
  16. SERAX [Concomitant]
     Active Substance: OXAZEPAM
     Route: 065
  17. ADVAIR HFA [Suspect]
     Active Substance: FLUTICASONE PROPIONATE\SALMETEROL XINAFOATE
     Indication: PRODUCT USED FOR UNKNOWN INDICATION
     Dosage: NOT SPECIFIED
  18. SPIRIVA [Suspect]
     Active Substance: TIOTROPIUM BROMIDE MONOHYDRATE
     Indication: PRODUCT USED FOR UNKNOWN INDICATION
     Route: 065
  19. ATIVAN [Concomitant]
     Active Substance: LORAZEPAM
     Dosage: NOT SPECIFIED
     Route: 065
  20. CALCIUM CARBONATE/COLECALCIFEROL [Concomitant]
     Active Substance: CALCIUM CARBONATE\CHOLECALCIFEROL
     Route: 065
  21. PANTOLOC [Concomitant]
     Active Substance: PANTOPRAZOLE SODIUM
     Route: 065

REACTIONS (29)
  - Breast neoplasm [Unknown]
  - Breath sounds abnormal [Unknown]
  - Chronic obstructive pulmonary disease [Unknown]
  - Cushingoid [Unknown]
  - Dyspnoea [Unknown]
  - Oral candidiasis [Unknown]
  - Bronchitis chronic [Unknown]
  - Kyphosis [Unknown]
  - Osteoporosis [Unknown]
  - Pneumonia [Unknown]
  - Productive cough [Unknown]
  - Acute respiratory failure [Unknown]
  - Asthma [Unknown]
  - Influenza [Unknown]
  - Lipohypertrophy [Unknown]
  - Presbyacusis [Unknown]
  - Skin lesion [Unknown]
  - Macrocytosis [Unknown]
  - Cushing^s syndrome [Unknown]
  - Hypercholesterolaemia [Unknown]
  - Hypertension [Unknown]
  - Neurosensory hypoacusis [Unknown]
  - Pulmonary mass [Unknown]
  - Sinus tachycardia [Unknown]
  - Basal cell carcinoma [Unknown]
  - Escherichia infection [Unknown]
  - Drug intolerance [Unknown]
  - Emphysema [Unknown]
  - Eosinophilia [Unknown]
